FAERS Safety Report 7432998-1 (Version None)
Quarter: 2011Q2

REPORT INFORMATION
  Report Type: 
  Country: None (occurrence: None)
  Receive Date: 20110415
  Receipt Date: 20110405
  Transmission Date: 20111010
  Serious: Yes (Disabling, Other)
  Sender: FDA-Public Use
  Company Number: ACO_23051_2011

PATIENT
  Age: 65 Year
  Sex: Male
  Weight: 68 kg

DRUGS (5)
  1. BACLOFEN [Concomitant]
  2. AMPYRA [Suspect]
     Indication: GAIT DISTURBANCE
     Dosage: 10MG, QD, ORAL
     Route: 048
     Dates: start: 20100101, end: 20110209
  3. OXYBUTYNIN [Concomitant]
  4. IBUPROFEN [Concomitant]
  5. AVONEX [Concomitant]

REACTIONS (10)
  - EXCORIATION [None]
  - GAIT DISTURBANCE [None]
  - BALANCE DISORDER [None]
  - URINARY INCONTINENCE [None]
  - CONTUSION [None]
  - HAEMORRHAGE [None]
  - INAPPROPRIATE SCHEDULE OF DRUG ADMINISTRATION [None]
  - POLLAKIURIA [None]
  - FALL [None]
  - TOOTH FRACTURE [None]
